FAERS Safety Report 12992855 (Version 1)
Quarter: 2016Q4

REPORT INFORMATION
  Report Type: Report from Study
  Country: NL (occurrence: NL)
  Receive Date: 20161202
  Receipt Date: 20161202
  Transmission Date: 20170207
  Serious: Yes (Hospitalization, Other)
  Sender: FDA-Public Use
  Company Number: NL-AMGEN-NLDSL2016169988

PATIENT
  Age: 96 Year
  Sex: Male

DRUGS (1)
  1. ARANESP [Suspect]
     Active Substance: DARBEPOETIN ALFA
     Indication: NEPHROGENIC ANAEMIA
     Dosage: 100 MUG, PER 5 WEKEN
     Route: 058

REACTIONS (2)
  - Hospitalisation [Unknown]
  - Living in residential institution [Unknown]

NARRATIVE: CASE EVENT DATE: 20161108
